FAERS Safety Report 17146064 (Version 1)
Quarter: 2019Q4

REPORT INFORMATION
  Report Type: Spontaneous
  Country: US (occurrence: US)
  Receive Date: 20191212
  Receipt Date: 20191212
  Transmission Date: 20200122
  Serious: No
  Sender: FDA-Public Use
  Company Number: US-GLENMARK PHARMACEUTICALS-2019GMK044008

PATIENT

DRUGS (2)
  1. OMEPRAZOLE. [Suspect]
     Active Substance: OMEPRAZOLE
     Dosage: 40 MG, OD
     Route: 065
     Dates: start: 201908
  2. OMEPRAZOLE. [Suspect]
     Active Substance: OMEPRAZOLE
     Indication: ULCER
     Dosage: 40 MG, OD
     Route: 065

REACTIONS (6)
  - Abdominal discomfort [Recovered/Resolved]
  - Drug ineffective [Unknown]
  - Product colour issue [Unknown]
  - Feeding disorder [Recovered/Resolved]
  - Product quality issue [Unknown]
  - Product size issue [Unknown]

NARRATIVE: CASE EVENT DATE: 2019
